FAERS Safety Report 11022797 (Version 2)
Quarter: 2015Q2

REPORT INFORMATION
  Report Type: Report from Study
  Country: GB (occurrence: GB)
  Receive Date: 20150413
  Receipt Date: 20150424
  Transmission Date: 20150821
  Serious: Yes (Other)
  Sender: FDA-Public Use
  Company Number: GB-JNJFOC-20150400684

PATIENT
  Age: 44 Year
  Sex: Female

DRUGS (1)
  1. STELARA [Suspect]
     Active Substance: USTEKINUMAB
     Indication: PSORIASIS
     Route: 058
     Dates: start: 20090402

REACTIONS (3)
  - Lower respiratory tract infection [Unknown]
  - Pharyngitis [Unknown]
  - Vaginal discharge [Unknown]

NARRATIVE: CASE EVENT DATE: 20150323
